FAERS Safety Report 18962999 (Version 1)
Quarter: 2021Q1

REPORT INFORMATION
  Report Type: Spontaneous
  Country: US (occurrence: US)
  Receive Date: 20210303
  Receipt Date: 20210303
  Transmission Date: 20210420
  Serious: No
  Sender: FDA-Public Use
  Company Number: US-JNJFOC-20210218838

PATIENT
  Sex: Female

DRUGS (9)
  1. MONTELUKAST [Concomitant]
     Active Substance: MONTELUKAST SODIUM
     Indication: PRODUCT USED FOR UNKNOWN INDICATION
     Route: 065
  2. BENADRYL [Suspect]
     Active Substance: DIPHENHYDRAMINE HYDROCHLORIDE
     Indication: SINUS CONGESTION
  3. GABAPENTIN. [Concomitant]
     Active Substance: GABAPENTIN
     Indication: TRIGEMINAL NEURALGIA
     Route: 065
  4. BENADRYL [Suspect]
     Active Substance: DIPHENHYDRAMINE HYDROCHLORIDE
     Indication: HYPOAESTHESIA
  5. PEPCID [Suspect]
     Active Substance: FAMOTIDINE
     Indication: HYPOAESTHESIA
  6. PEPCID [Suspect]
     Active Substance: FAMOTIDINE
     Indication: SINUS CONGESTION
  7. ROSUVASTATIN. [Concomitant]
     Active Substance: ROSUVASTATIN
     Indication: HYPERCHOLESTEROLAEMIA
     Route: 065
  8. BENADRYL [Suspect]
     Active Substance: DIPHENHYDRAMINE HYDROCHLORIDE
     Indication: HYPOAESTHESIA ORAL
     Route: 065
  9. PEPCID [Suspect]
     Active Substance: FAMOTIDINE
     Indication: HYPOAESTHESIA ORAL
     Route: 065

REACTIONS (5)
  - Loss of personal independence in daily activities [Unknown]
  - Somnolence [Unknown]
  - Therapeutic response unexpected [Unknown]
  - Product use in unapproved indication [Unknown]
  - Off label use [Unknown]
